FAERS Safety Report 4695759-2 (Version None)
Quarter: 2005Q2

REPORT INFORMATION
  Report Type: 
  Country: None (occurrence: None)
  Receive Date: 20050621
  Receipt Date: 20050609
  Transmission Date: 20051028
  Serious: Yes (Hospitalization)
  Sender: FDA-Public Use
  Company Number: FR-BRISTOL-MYERS SQUIBB COMPANY-12999009

PATIENT
  Age: 68 Year
  Sex: Female

DRUGS (2)
  1. COAPROVEL TABS [Suspect]
     Indication: HYPERTENSION
     Route: 048
     Dates: start: 20050201, end: 20050413
  2. SPORANOX [Suspect]
     Indication: CUTANEOUS SPOROTRICHOSIS
     Dates: start: 20041220, end: 20050410

REACTIONS (5)
  - ANOREXIA [None]
  - DEHYDRATION [None]
  - HYPOKALAEMIA [None]
  - INFLUENZA [None]
  - WEIGHT DECREASED [None]
